FAERS Safety Report 22073220 (Version 4)
Quarter: 2023Q2

REPORT INFORMATION
  Report Type: Spontaneous
  Country: JP (occurrence: JP)
  Receive Date: 20230308
  Receipt Date: 20230420
  Transmission Date: 20230721
  Serious: Yes (Death, Other)
  Sender: FDA-Public Use
  Company Number: JP-NBI-BJ202304110

PATIENT
  Age: 65 Year
  Sex: Male
  Weight: 63.0 kg

DRUGS (1)
  1. OFEV [Suspect]
     Active Substance: NINTEDANIB
     Indication: Idiopathic pulmonary fibrosis
     Route: 048
     Dates: start: 20160519

REACTIONS (2)
  - Idiopathic pulmonary fibrosis [Fatal]
  - Forced vital capacity decreased [Recovered/Resolved]

NARRATIVE: CASE EVENT DATE: 20170711
